FAERS Safety Report 8590242-6 (Version None)
Quarter: 2012Q3

REPORT INFORMATION
  Report Type: 
  Country: None (occurrence: None)
  Receive Date: 20120813
  Receipt Date: 20120803
  Transmission Date: 20120928
  Serious: Yes (Death)
  Sender: FDA-Public Use
  Company Number: IT-BRISTOL-MYERS SQUIBB COMPANY-16850190

PATIENT
  Age: 60 Year
  Sex: Female

DRUGS (9)
  1. ENALAPRIL MALEATE [Concomitant]
  2. BISOPROLOL [Concomitant]
  3. METFORMIN HCL [Suspect]
     Indication: DIABETES MELLITUS
     Route: 048
     Dates: start: 20100101, end: 20120727
  4. ASPIRIN [Concomitant]
  5. PANTOPRAZOLE SODIUM [Concomitant]
  6. FUROSEMIDE [Concomitant]
  7. TIABENDAZOLE [Concomitant]
     Dosage: STATINE
  8. LACTIC FERMENTS [Concomitant]
  9. AMLODIPINE BESYLATE [Concomitant]

REACTIONS (2)
  - LACTIC ACIDOSIS [None]
  - TOXICITY TO VARIOUS AGENTS [None]
